FAERS Safety Report 9780345 (Version 1)
Quarter: 2013Q4

REPORT INFORMATION
  Report Type: Report from Study
  Country: US (occurrence: US)
  Receive Date: 20131224
  Receipt Date: 20131224
  Transmission Date: 20140711
  Serious: Yes (Death)
  Sender: FDA-Public Use
  Company Number: US-ROCHE-1324356

PATIENT
  Sex: Male
  Weight: 87.85 kg

DRUGS (19)
  1. AVASTIN [Suspect]
     Indication: MALIGNANT MELANOMA
     Dosage: 21/SEP/2012,  4/OCT/2012, 29/OCT/2012, 12/NOV/2012, 28/NOV/2012, 10/DEC/2012, 20/DEC/2012,  2/JAN/20
     Route: 042
  2. AVASTIN [Suspect]
     Indication: METASTASES TO LYMPH NODES
  3. TYLENOL [Concomitant]
     Dosage: 14/FEB/2013
     Route: 048
  4. FAMOTIDINE [Concomitant]
     Dosage: 4/APR/2013
     Route: 042
  5. ZOFRAN [Concomitant]
     Dosage: 14/FEB/2013
     Route: 042
  6. BENADRYL (UNITED STATES) [Concomitant]
     Dosage: 4/APR/2013
     Route: 042
  7. DEXTROMETHORPHAN [Concomitant]
     Route: 042
  8. ABRAXANE [Concomitant]
     Dosage: 14/MAR/2013
     Route: 042
  9. NORMAL SALINE [Concomitant]
     Route: 042
  10. VORINOSTAT [Concomitant]
     Route: 065
  11. SPRYCEL [Concomitant]
     Dosage: 14/FEB/2013
     Route: 048
  12. ACETAMINOPHEN [Concomitant]
     Dosage: 4/APR/2013
     Route: 048
  13. LYRICA [Concomitant]
     Dosage: 14/FEB/2013
     Route: 065
  14. AFINITOR [Concomitant]
     Route: 048
  15. DECADRON [Concomitant]
     Dosage: 29/OCT/2012
     Route: 042
  16. NEUPOGEN [Concomitant]
     Dosage: 27/FEB/2013
     Route: 065
  17. PACLITAXEL [Concomitant]
     Route: 042
  18. GABAPENTIN [Concomitant]
     Dosage: 01/JAN/2013
     Route: 048
  19. TRAMADOL [Concomitant]
     Dosage: 02/MAY/2013
     Route: 048

REACTIONS (11)
  - Death [Fatal]
  - Vision blurred [Unknown]
  - Hypoaesthesia [Unknown]
  - Visual impairment [Unknown]
  - Musculoskeletal pain [Unknown]
  - Neuropathy peripheral [Unknown]
  - Arthralgia [Unknown]
  - Constipation [Unknown]
  - Diarrhoea [Unknown]
  - Sinus headache [Unknown]
  - Diarrhoea [Unknown]
